FAERS Safety Report 16828865 (Version 1)
Quarter: 2019Q3

REPORT INFORMATION
  Report Type: Spontaneous
  Country: GB (occurrence: GB)
  Receive Date: 20190919
  Receipt Date: 20190919
  Transmission Date: 20191005
  Serious: Yes (Other)
  Sender: FDA-Public Use
  Company Number: GB-JNJFOC-20190913884

PATIENT
  Sex: Female

DRUGS (3)
  1. LEVOTHYROXINE. [Concomitant]
     Active Substance: LEVOTHYROXINE
     Route: 065
  2. SPORANOX [Suspect]
     Active Substance: ITRACONAZOLE
     Indication: ORAL FUNGAL INFECTION
     Route: 048
     Dates: start: 20190811, end: 20190814
  3. ELLESTE-SOLO [Concomitant]
     Route: 065

REACTIONS (3)
  - Faeces pale [Not Recovered/Not Resolved]
  - Swollen tongue [Recovered/Resolved]
  - Diarrhoea [Not Recovered/Not Resolved]
